FAERS Safety Report 21062403 (Version 1)
Quarter: 2022Q3

REPORT INFORMATION
  Report Type: Report from Study
  Country: PR (occurrence: PR)
  Receive Date: 20220711
  Receipt Date: 20220711
  Transmission Date: 20221027
  Serious: Yes (Hospitalization, Other)
  Sender: FDA-Public Use
  Company Number: PR-AMGEN-PRISL2022115848

PATIENT
  Sex: Female

DRUGS (2)
  1. OTEZLA [Suspect]
     Active Substance: APREMILAST
     Indication: Psoriasis
     Dosage: 1 UNK, BID
     Route: 065
     Dates: start: 20211229
  2. OTEZLA [Suspect]
     Active Substance: APREMILAST
     Dosage: UNK UNK, (ONE TABLET EVERY OTHER DAY)
     Route: 065

REACTIONS (2)
  - Sepsis [Unknown]
  - Macule [Recovered/Resolved]
